FAERS Safety Report 7721757-8 (Version None)
Quarter: 2011Q3

REPORT INFORMATION
  Report Type: 
  Country: None (occurrence: None)
  Receive Date: 20110831
  Receipt Date: 20110823
  Transmission Date: 20111222
  Serious: Yes (Hospitalization)
  Sender: FDA-Public Use
  Company Number: CH-US-EMD SERONO, INC.-7029332

PATIENT
  Sex: Male
  Weight: 86 kg

DRUGS (7)
  1. REBIF [Suspect]
     Indication: MULTIPLE SCLEROSIS
     Route: 058
     Dates: start: 20030101
  2. TRANXILIM [Concomitant]
  3. ACETAMINOPHEN [Concomitant]
  4. ASPIRIN [Concomitant]
  5. REBIF [Suspect]
  6. PANTAZOL [Concomitant]
  7. IBUBRUFEN [Concomitant]

REACTIONS (5)
  - SKIN INDURATION [None]
  - CAMPYLOBACTER INFECTION [None]
  - BONE PAIN [None]
  - SKIN NECROSIS [None]
  - LIPOATROPHY [None]
